FAERS Safety Report 21554961 (Version 7)
Quarter: 2023Q2

REPORT INFORMATION
  Report Type: Report from Study
  Country: US (occurrence: US)
  Receive Date: 20221104
  Receipt Date: 20230516
  Transmission Date: 20230721
  Serious: Yes (Other)
  Sender: FDA-Public Use
  Company Number: US-MYLANLABS-2022M1119680

PATIENT
  Sex: Female
  Weight: 68.02 kg

DRUGS (6)
  1. DILANTIN [Suspect]
     Active Substance: PHENYTOIN
     Indication: Epilepsy
     Dosage: 100 MILLIGRAM (100 MG 4 A DAY 5 A DAY)
     Route: 065
     Dates: start: 2019
  2. CELEBREX [Suspect]
     Active Substance: CELECOXIB
     Indication: Arthritis
     Dosage: 20 MILLIGRAM, QD (20 MG, 1X/DAY)
     Route: 065
     Dates: start: 2019, end: 2022
  3. PREMARIN [Suspect]
     Active Substance: ESTROGENS, CONJUGATED
     Indication: Hysterectomy
     Dosage: 0.625 MILLIGRAM, QD
     Route: 065
     Dates: start: 1995
  4. PREMARIN [Suspect]
     Active Substance: ESTROGENS, CONJUGATED
     Indication: Osteoporosis
     Dosage: 0.625 MILLIGRAM, QD
     Route: 065
     Dates: start: 2019
  5. PREMARIN [Suspect]
     Active Substance: ESTROGENS, CONJUGATED
     Indication: Menopausal symptoms
  6. PHENYTOIN SODIUM [Concomitant]
     Active Substance: PHENYTOIN SODIUM
     Dosage: UNK
     Route: 065
     Dates: start: 1959

REACTIONS (6)
  - Arthropathy [Unknown]
  - Cataract [Unknown]
  - Astigmatism [Unknown]
  - Osteopenia [Unknown]
  - Visual impairment [Unknown]
  - Therapy cessation [Unknown]
